FAERS Safety Report 20487997 (Version 2)
Quarter: 2022Q1

REPORT INFORMATION
  Report Type: Spontaneous
  Country: JP (occurrence: JP)
  Receive Date: 20220218
  Receipt Date: 20220315
  Transmission Date: 20220423
  Serious: Yes (Hospitalization, Other)
  Sender: FDA-Public Use
  Company Number: JP-TEVA-2022-JP-1998577

PATIENT
  Age: 88 Year
  Sex: Female
  Weight: 36.5 kg

DRUGS (14)
  1. AZILECT [Suspect]
     Active Substance: RASAGILINE MESYLATE
     Indication: Parkinson^s disease
     Dosage: 1 MILLIGRAM DAILY; AZILECT TABLETS 1MG
     Route: 048
     Dates: end: 20220104
  2. AZILECT [Suspect]
     Active Substance: RASAGILINE MESYLATE
     Dosage: 1 MILLIGRAM DAILY; AZILECT TABLETS 1MG
     Route: 048
     Dates: start: 20220106
  3. VONOPRAZAN FUMARATE [Concomitant]
     Active Substance: VONOPRAZAN FUMARATE
  4. ADETPHOS [Concomitant]
     Active Substance: ADENOSINE TRIPHOSPHATE
  5. Marzulene [Concomitant]
  6. TRANEXAMIC ACID [Concomitant]
     Active Substance: TRANEXAMIC ACID
  7. ASTOMIN [Concomitant]
  8. MAGNESIUM OXIDE [Concomitant]
     Active Substance: MAGNESIUM OXIDE
  9. DEPAS [Concomitant]
  10. REFLEX [Concomitant]
     Active Substance: MIRTAZAPINE
     Dates: start: 20220105
  11. TEGRETOL [Concomitant]
     Active Substance: CARBAMAZEPINE
  12. CARBIDOPA\LEVODOPA [Concomitant]
     Active Substance: CARBIDOPA\LEVODOPA
  13. NAUZELIN [Concomitant]
     Active Substance: DOMPERIDONE
  14. AMBROXOL [Concomitant]
     Active Substance: AMBROXOL

REACTIONS (6)
  - Fall [Recovering/Resolving]
  - Thoracic vertebral fracture [Recovering/Resolving]
  - Product dose omission issue [Unknown]
  - Decreased appetite [Unknown]
  - Vomiting [Unknown]
  - Nausea [Unknown]

NARRATIVE: CASE EVENT DATE: 20220101
